FAERS Safety Report 9630182 (Version 1)
Quarter: 2013Q4

REPORT INFORMATION
  Report Type: Spontaneous
  Country: BR (occurrence: BR)
  Receive Date: 20131017
  Receipt Date: 20131017
  Transmission Date: 20140711
  Serious: Yes (Other)
  Sender: FDA-Public Use
  Company Number: BR-TAKEDA-2013TJP001787

PATIENT
  Age: 66 Year
  Sex: Male

DRUGS (2)
  1. PIOGLITAZONE [Suspect]
     Indication: INSULIN RESISTANCE
     Dosage: 30 MG, QD
     Route: 048
     Dates: start: 2010
  2. LIRAGLUTIDA [Concomitant]
     Indication: PRODUCT USED FOR UNKNOWN INDICATION

REACTIONS (2)
  - Bladder cancer [Unknown]
  - Blood urine present [Unknown]
